FAERS Safety Report 24761952 (Version 1)
Quarter: 2024Q4

REPORT INFORMATION
  Report Type: Spontaneous
  Country: US (occurrence: US)
  Receive Date: 20241221
  Receipt Date: 20241221
  Transmission Date: 20250115
  Serious: No
  Sender: SANOFI AVENTIS
  Company Number: US-SA-2024SA375010

PATIENT
  Age: 46 Year
  Sex: Male

DRUGS (1)
  1. DUPIXENT [Suspect]
     Active Substance: DUPILUMAB
     Indication: Eosinophilic oesophagitis
     Dosage: 300 MG, QW
     Route: 058
     Dates: start: 202410, end: 202412

REACTIONS (4)
  - Throat tightness [Unknown]
  - Oral discomfort [Unknown]
  - Nasopharyngitis [Unknown]
  - Productive cough [Unknown]

NARRATIVE: CASE EVENT DATE: 20240101
